FAERS Safety Report 6040134-1 (Version None)
Quarter: 2009Q1

REPORT INFORMATION
  Report Type: 
  Country: None (occurrence: None)
  Receive Date: 20090116
  Receipt Date: 20071219
  Transmission Date: 20090719
  Serious: No
  Sender: FDA-Public Use
  Company Number: US-BRISTOL-MYERS SQUIBB COMPANY-14020507

PATIENT
  Age: 11 Year
  Sex: Male

DRUGS (2)
  1. ABILIFY [Suspect]
     Indication: BIPOLAR DISORDER
     Dosage: ^LOW DOSE^ IS TAKEN.
     Route: 048
  2. CONCERTA [Concomitant]

REACTIONS (1)
  - WEIGHT INCREASED [None]
